FAERS Safety Report 10069985 (Version 1)
Quarter: 2014Q2

REPORT INFORMATION
  Report Type: Report from Study
  Country: US (occurrence: US)
  Receive Date: 20140410
  Receipt Date: 20140410
  Transmission Date: 20141212
  Serious: Yes (Hospitalization)
  Sender: FDA-Public Use
  Company Number: US-JNJFOC-20140403954

PATIENT
  Sex: Female
  Weight: 115.21 kg

DRUGS (21)
  1. REMICADE [Suspect]
     Indication: FIBROMYALGIA
     Route: 042
     Dates: start: 2011
  2. REMICADE [Suspect]
     Indication: FIBROMYALGIA
     Route: 042
     Dates: start: 201310, end: 201403
  3. REMICADE [Suspect]
     Indication: FIBROMYALGIA
     Route: 042
     Dates: start: 2006, end: 2008
  4. REMICADE [Suspect]
     Indication: RHEUMATOID ARTHRITIS
     Route: 042
     Dates: start: 2011
  5. REMICADE [Suspect]
     Indication: RHEUMATOID ARTHRITIS
     Route: 042
     Dates: start: 201310, end: 201403
  6. REMICADE [Suspect]
     Indication: RHEUMATOID ARTHRITIS
     Route: 042
     Dates: start: 2006, end: 2008
  7. NEURONTIN [Concomitant]
     Indication: RHEUMATOID ARTHRITIS
     Route: 048
  8. LEVOTHROID [Concomitant]
     Indication: THYROID DISORDER
     Route: 048
     Dates: start: 2008
  9. SOTALOL [Concomitant]
     Indication: CARDIAC DISORDER
     Route: 048
     Dates: start: 2009
  10. WARFARIN [Concomitant]
     Indication: ANTICOAGULANT THERAPY
     Dosage: ONCE A DAY ON TUESDAY, THURSDAY
     Route: 048
     Dates: start: 2008
  11. WARFARIN [Concomitant]
     Indication: ANTICOAGULANT THERAPY
     Dosage: ONCE A DAY ON MONDAY, WEDNESDAY, FRIDAY, SATURDAY AND SUNDAY
     Route: 048
     Dates: start: 2008
  12. LANOXIN [Concomitant]
     Indication: CARDIAC DISORDER
     Route: 048
     Dates: start: 201403
  13. XYZAL [Concomitant]
     Indication: MULTIPLE ALLERGIES
     Dosage: AT BED TIME
     Route: 048
     Dates: start: 2013
  14. OXYBUTIN [Concomitant]
     Indication: URINARY INCONTINENCE
     Route: 048
     Dates: start: 2013
  15. TRAMADOL HYDROCHLORIDE [Concomitant]
     Indication: ARTHRITIS
     Route: 048
     Dates: start: 2013
  16. MOBIC [Concomitant]
     Indication: ARTHRITIS
     Route: 048
     Dates: start: 2013
  17. ZOFRAN [Concomitant]
     Indication: NAUSEA
     Dosage: AS NEEDED
     Route: 048
     Dates: start: 2013
  18. EFFEXOR XR [Concomitant]
     Indication: DEPRESSION
     Route: 048
     Dates: start: 2013
  19. PROTONIX [Concomitant]
     Indication: GASTRIC DISORDER
     Route: 048
     Dates: start: 201311
  20. COLACE [Concomitant]
     Indication: FAECES HARD
     Route: 048
     Dates: start: 2010
  21. PREDNISONE [Concomitant]
     Indication: INFLAMMATION
     Route: 048
     Dates: start: 201404

REACTIONS (13)
  - Thyroid cancer [Recovered/Resolved]
  - Myocardial infarction [Unknown]
  - Pneumonia [Unknown]
  - Intestinal obstruction [Recovered/Resolved]
  - Gastrointestinal haemorrhage [Recovered/Resolved]
  - Herpes zoster [Recovered/Resolved]
  - Staphylococcal infection [Recovered/Resolved]
  - Foot fracture [Recovered/Resolved]
  - Cyst [Recovered/Resolved]
  - Foot deformity [Recovered/Resolved]
  - Infusion related reaction [Not Recovered/Not Resolved]
  - Nausea [Not Recovered/Not Resolved]
  - Off label use [Unknown]
